FAERS Safety Report 17446830 (Version 1)
Quarter: 2020Q1

REPORT INFORMATION
  Report Type: Spontaneous
  Country: US (occurrence: US)
  Receive Date: 20200221
  Receipt Date: 20200221
  Transmission Date: 20200409
  Serious: No
  Sender: FDA-Public Use
  Company Number: US-TARO-2019TAR00719

PATIENT
  Age: 45 Year
  Sex: Female
  Weight: 76.64 kg

DRUGS (7)
  1. GABAPENTIN. [Concomitant]
     Active Substance: GABAPENTIN
  2. MAGNESIUM [Concomitant]
     Active Substance: MAGNESIUM
  3. FLUOXETINE [Concomitant]
     Active Substance: FLUOXETINE HYDROCHLORIDE
  4. CLONAZEPAM. [Concomitant]
     Active Substance: CLONAZEPAM
  5. TIZANIDINE. [Concomitant]
     Active Substance: TIZANIDINE
  6. VITAMIN D3 ACIDOPHILUS [Concomitant]
  7. MICONAZOLE NITRATE VAGINAL CREAM USP 2% 7 DAY CREAM [Suspect]
     Active Substance: MICONAZOLE NITRATE
     Indication: VULVOVAGINAL MYCOTIC INFECTION
     Dosage: 1 APPLICATORFUL, 1X/DAY
     Route: 067
     Dates: start: 20191014

REACTIONS (2)
  - Dizziness [Not Recovered/Not Resolved]
  - Vomiting [Not Recovered/Not Resolved]

NARRATIVE: CASE EVENT DATE: 20191017
